FAERS Safety Report 6389171-8 (Version None)
Quarter: 2009Q4

REPORT INFORMATION
  Report Type: 
  Country: None (occurrence: None)
  Receive Date: 20091006
  Receipt Date: 20091001
  Transmission Date: 20100525
  Serious: Yes (Hospitalization, Other)
  Sender: FDA-Public Use
  Company Number: AU-WYE-G04542609

PATIENT

DRUGS (1)
  1. PRISTIQ [Suspect]
     Dosage: UNKNOWN

REACTIONS (3)
  - DRUG INEFFECTIVE [None]
  - INSOMNIA [None]
  - SUICIDAL IDEATION [None]
